FAERS Safety Report 11646928 (Version 2)
Quarter: 2016Q2

REPORT INFORMATION
  Report Type: Report from Study
  Country: BE (occurrence: BE)
  Receive Date: 20151020
  Receipt Date: 20160426
  Transmission Date: 20160815
  Serious: Yes (Hospitalization, Other)
  Sender: FDA-Public Use
  Company Number: BE-ASTRAZENECA-2015SE62687

PATIENT
  Age: 27865 Day
  Sex: Male

DRUGS (7)
  1. ASPIRIN. [Suspect]
     Active Substance: ASPIRIN
     Indication: THROMBOSIS PROPHYLAXIS
     Dosage: MAINTENANCE -TOTAL DAILY DOSE - 80MG (NON AZ PRODUCT)
     Route: 048
     Dates: start: 20060825
  2. CAPTOPRIL. [Concomitant]
     Active Substance: CAPTOPRIL
  3. CORDARONE [Concomitant]
     Active Substance: AMIODARONE HYDROCHLORIDE
  4. BURINEX [Concomitant]
     Active Substance: BUMETANIDE
  5. CHOLEMED [Concomitant]
  6. SELOKEN [Concomitant]
     Active Substance: METOPROLOL
  7. TICAGRELOR [Suspect]
     Active Substance: TICAGRELOR
     Indication: THROMBOSIS PROPHYLAXIS
     Route: 048
     Dates: start: 20150528

REACTIONS (1)
  - Atrioventricular block second degree [Recovered/Resolved]

NARRATIVE: CASE EVENT DATE: 20150529
